FAERS Safety Report 6796714-9 (Version None)
Quarter: 2010Q2

REPORT INFORMATION
  Report Type: 
  Country: None (occurrence: None)
  Receive Date: 20100610
  Receipt Date: 20100607
  Transmission Date: 20101027
  Serious: Yes (Other)
  Sender: FDA-Public Use
  Company Number: JHP201000182

PATIENT
  Sex: Female

DRUGS (2)
  1. APLISOL [Suspect]
     Indication: TUBERCULOSIS TEST
     Dosage: 0.1 ML, SINGLE, INTRADERMAL 0.1 ML, SINGLE, INTRADERMAL
     Route: 023
     Dates: start: 20100512, end: 20100512
  2. APLISOL [Suspect]
     Indication: TUBERCULOSIS TEST
     Dosage: 0.1 ML, SINGLE, INTRADERMAL 0.1 ML, SINGLE, INTRADERMAL
     Route: 023
     Dates: start: 20100604, end: 20100604

REACTIONS (3)
  - BREAST ABSCESS [None]
  - MUSCULOSKELETAL PAIN [None]
  - PAIN IN EXTREMITY [None]
